FAERS Safety Report 4945866-1 (Version None)
Quarter: 2006Q1

REPORT INFORMATION
  Report Type: 
  Country: None (occurrence: None)
  Receive Date: 20060117
  Receipt Date: 20041214
  Transmission Date: 20060701
  Serious: Yes (Life-Threatening, Hospitalization, Disabling)
  Sender: FDA-Public Use
  Company Number: A03200404207

PATIENT
  Age: 52 Year
  Sex: Female
  Weight: 92.2 kg

DRUGS (9)
  1. PLAVIX [Suspect]
     Indication: CEREBROVASCULAR ACCIDENT PROPHYLAXIS
     Dosage: 75 MG QD - ORAL
     Route: 048
     Dates: start: 20010101, end: 20040101
  2. ACETYLSALICYLIC ACID SRT [Concomitant]
  3. PERPHENAZINE [Concomitant]
  4. GABAPENTIN [Concomitant]
  5. ATORVASTATIN CALCIUM [Concomitant]
  6. ZOLPIDEM TARTRATE [Concomitant]
  7. VENLAFAXINE HCL [Concomitant]
  8. PAROXETINE HYDROCHLORIDE [Concomitant]
  9. EZETIMIBE [Concomitant]

REACTIONS (2)
  - CEREBROVASCULAR ACCIDENT [None]
  - THROMBOTIC THROMBOCYTOPENIC PURPURA [None]
